FAERS Safety Report 4287375-1 (Version None)
Quarter: 2004Q1

REPORT INFORMATION
  Report Type: 
  Country: None (occurrence: None)
  Receive Date: 20040209
  Receipt Date: 20030613
  Transmission Date: 20041129
  Serious: No
  Sender: FDA-Public Use
  Company Number: US-GLAXOSMITHKLINE-A0412310A

PATIENT
  Sex: Male

DRUGS (3)
  1. PAXIL CR [Suspect]
     Indication: DEPRESSION
     Route: 048
     Dates: start: 20030101
  2. DEPAKOTE [Concomitant]
  3. RISPERDAL [Concomitant]

REACTIONS (4)
  - BALANCE DISORDER [None]
  - DISABILITY [None]
  - DIZZINESS [None]
  - IMPAIRED DRIVING ABILITY [None]
